FAERS Safety Report 16069277 (Version 2)
Quarter: 2019Q2

REPORT INFORMATION
  Report Type: Report from Study
  Country: PA (occurrence: PA)
  Receive Date: 20190313
  Receipt Date: 20190412
  Transmission Date: 20190711
  Serious: Yes (Other)
  Sender: FDA-Public Use
  Company Number: PHHY2019PA054921

PATIENT
  Age: 92 Year
  Sex: Female
  Weight: 58.96 kg

DRUGS (3)
  1. INSULIN [Concomitant]
     Active Substance: INSULIN NOS
     Indication: DIABETES MELLITUS
     Dosage: 12 U, UNK
     Route: 065
  2. VYMADA [Suspect]
     Active Substance: SACUBITRIL\VALSARTAN
     Indication: HYPERTENSION
     Dosage: 200 MG (97 MG SACUBITRIL/ 103 MG VALSARTAN), UNK
     Route: 065
  3. OMEPRAZOLE. [Concomitant]
     Active Substance: OMEPRAZOLE
     Indication: PROPHYLAXIS
     Route: 065

REACTIONS (8)
  - Fall [Unknown]
  - Hand fracture [Unknown]
  - Product use in unapproved indication [Unknown]
  - Blood pressure increased [Recovering/Resolving]
  - Weight increased [Unknown]
  - Discomfort [Unknown]
  - Eye pruritus [Recovered/Resolved]
  - Diabetes mellitus [Unknown]

NARRATIVE: CASE EVENT DATE: 201811
